FAERS Safety Report 20020855 (Version 6)
Quarter: 2022Q2

REPORT INFORMATION
  Report Type: Report from Study
  Country: CO (occurrence: CO)
  Receive Date: 20211101
  Receipt Date: 20220415
  Transmission Date: 20220721
  Serious: Yes (Life-Threatening, Other)
  Sender: FDA-Public Use
  Company Number: CO-NOVARTISPH-NVSC2021CO060302

PATIENT
  Age: 74 Year
  Sex: Female
  Weight: 74 kg

DRUGS (5)
  1. KISQALI [Suspect]
     Active Substance: RIBOCICLIB
     Indication: Hormone receptor positive HER2 negative breast cancer
     Dosage: 600 MG, QD ((200 MG TABLETS, ONCE A DAILY) (STARTED A YEAR AND A HALF AGO)
     Route: 048
  2. KISQALI [Suspect]
     Active Substance: RIBOCICLIB
     Dosage: 400 MG, QD (2 TABLETS A DAY)
     Route: 048
  3. KISQALI [Suspect]
     Active Substance: RIBOCICLIB
     Dosage: 600 MG, QD (200 MG TABLETS, ONCE A DAILY)
     Route: 048
     Dates: start: 20220407
  4. FULVESTRANT [Suspect]
     Active Substance: FULVESTRANT
     Indication: Breast cancer
     Dosage: UNK, QMO (STARTED FROM A YEAR AND HALF AGO)
     Route: 030
  5. OXYGEN [Concomitant]
     Active Substance: OXYGEN
     Indication: Metastases to lung
     Dosage: UNK, QD (AT NIGHTS)
     Route: 065

REACTIONS (11)
  - Near death experience [Unknown]
  - Syncope [Unknown]
  - Decreased immune responsiveness [Recovering/Resolving]
  - Ill-defined disorder [Unknown]
  - COVID-19 [Unknown]
  - Chest discomfort [Unknown]
  - Hypertension [Unknown]
  - Dizziness [Unknown]
  - Vomiting [Unknown]
  - Fatigue [Unknown]
  - Dry skin [Unknown]

NARRATIVE: CASE EVENT DATE: 20220125
